FAERS Safety Report 14378571 (Version 2)
Quarter: 2018Q3

REPORT INFORMATION
  Report Type: Spontaneous
  Country: GB (occurrence: GB)
  Receive Date: 20180112
  Receipt Date: 20180904
  Transmission Date: 20181010
  Serious: Yes (Hospitalization)
  Sender: FDA-Public Use
  Company Number: GB-ROCHE-2053762

PATIENT
  Sex: Female

DRUGS (6)
  1. ASPIRIN. [Concomitant]
     Active Substance: ASPIRIN
  2. GAZYVARO [Suspect]
     Active Substance: OBINUTUZUMAB
     Indication: IMMUNE ENHANCEMENT THERAPY
     Route: 042
  3. ERYTHROMYCIN. [Concomitant]
     Active Substance: ERYTHROMYCIN
     Dosage: 4 TIMES A DAY FOR 4 MORE DAYS.
     Route: 065
  4. LETROZOLE. [Concomitant]
     Active Substance: LETROZOLE
  5. CHLORAMBUCIL [Suspect]
     Active Substance: CHLORAMBUCIL
     Indication: IMMUNE ENHANCEMENT THERAPY
     Route: 065
  6. IBRUTINIB [Concomitant]
     Active Substance: IBRUTINIB

REACTIONS (2)
  - Myocardial infarction [Unknown]
  - Muscle spasms [Unknown]

NARRATIVE: CASE EVENT DATE: 20171003
